FAERS Safety Report 4946471-3 (Version None)
Quarter: 2006Q1

REPORT INFORMATION
  Report Type: 
  Country: None (occurrence: None)
  Receive Date: 20060317
  Receipt Date: 20060223
  Transmission Date: 20060701
  Serious: Yes (Other)
  Sender: FDA-Public Use
  Company Number: PHEH2006US02571

PATIENT
  Age: 84 Year
  Sex: Male

DRUGS (2)
  1. ZOMETA [Suspect]
     Indication: PROSTATE CANCER METASTATIC
     Dosage: 4 MG, QMO
     Dates: start: 20050121, end: 20051201
  2. ZOMETA [Suspect]
     Dosage: 3 MG, UNK
     Dates: start: 20050801, end: 20051201

REACTIONS (1)
  - OSTEONECROSIS [None]
